FAERS Safety Report 4297158-4 (Version None)
Quarter: 2004Q1

REPORT INFORMATION
  Report Type: 
  Country: None (occurrence: None)
  Receive Date: 20040218
  Receipt Date: 20040210
  Transmission Date: 20041129
  Serious: Yes (Other)
  Sender: FDA-Public Use
  Company Number: 200411974GDDC

PATIENT
  Age: 65 Year
  Sex: Female

DRUGS (3)
  1. DOCETAXEL [Suspect]
     Indication: LUNG ADENOCARCINOMA STAGE III
     Route: 042
  2. GEMCITABINE [Concomitant]
     Indication: LUNG ADENOCARCINOMA STAGE III
     Dosage: DOSE: UNK
  3. CISPLATIN [Concomitant]
     Indication: LUNG ADENOCARCINOMA STAGE III
     Dosage: DOSE: UNK

REACTIONS (15)
  - CELLULITIS [None]
  - DERMATITIS BULLOUS [None]
  - DRY SKIN [None]
  - DYSAESTHESIA [None]
  - ERYTHEMA [None]
  - EXTRAVASATION [None]
  - INFUSION SITE PAIN [None]
  - INJECTION SITE INFLAMMATION [None]
  - INJECTION SITE REACTION [None]
  - INJECTION SITE SWELLING [None]
  - OEDEMA [None]
  - PERIPHERAL NERVE INJURY [None]
  - SKIN DESQUAMATION [None]
  - SKIN DISCOLOURATION [None]
  - SKIN HYPERPIGMENTATION [None]
